FAERS Safety Report 5397600-1 (Version None)
Quarter: 2007Q3

REPORT INFORMATION
  Report Type: 
  Country: None (occurrence: None)
  Receive Date: 20070723
  Receipt Date: 20070723
  Transmission Date: 20080115
  Serious: No
  Sender: FDA-Public Use
  Company Number: None

PATIENT
  Age: 53 Year
  Sex: Female
  Weight: 64.4108 kg

DRUGS (1)
  1. VYTORIN [Suspect]
     Indication: BLOOD CHOLESTEROL INCREASED
     Dates: start: 20060913, end: 20061110

REACTIONS (4)
  - ASTHENIA [None]
  - GAIT DISTURBANCE [None]
  - PAIN [None]
  - SLEEP DISORDER [None]
